FAERS Safety Report 10376324 (Version 1)
Quarter: 2014Q3

REPORT INFORMATION
  Report Type: Spontaneous
  Country: FR (occurrence: FR)
  Receive Date: 20140811
  Receipt Date: 20140811
  Transmission Date: 20150326
  Serious: Yes (Hospitalization, Other)
  Sender: FDA-Public Use
  Company Number: FR-GILEAD-2014-0110912

PATIENT
  Age: 48 Year
  Sex: Male

DRUGS (4)
  1. NAPROXENE /00256201/ [Suspect]
     Active Substance: NAPROXEN
     Indication: PRODUCT USED FOR UNKNOWN INDICATION
     Dosage: 550 MG, TID
     Route: 065
     Dates: start: 20140310, end: 20140315
  2. PARACETAMOL [Concomitant]
     Active Substance: ACETAMINOPHEN
     Dosage: UNK
     Dates: start: 20140310
  3. EVIPLERA [Suspect]
     Active Substance: EMTRICITABINE\RILPIVIRINE\TENOFOVIR DISOPROXIL FUMARATE
     Indication: HIV INFECTION
     Dosage: UNK
     Route: 048
     Dates: start: 20140307
  4. XARELTO [Suspect]
     Active Substance: RIVAROXABAN
     Indication: PRODUCT USED FOR UNKNOWN INDICATION
     Dosage: 10 MG, QD
     Route: 048
     Dates: start: 20140310, end: 20140315

REACTIONS (7)
  - Rectal haemorrhage [Not Recovered/Not Resolved]
  - Overdose [None]
  - Shock haemorrhagic [Not Recovered/Not Resolved]
  - Haemorrhage [Not Recovered/Not Resolved]
  - Gastroduodenal ulcer [None]
  - Abdominal pain upper [Not Recovered/Not Resolved]
  - Gastroduodenal haemorrhage [None]

NARRATIVE: CASE EVENT DATE: 20140315
